FAERS Safety Report 21633857 (Version 5)
Quarter: 2022Q4

REPORT INFORMATION
  Report Type: Report from Study
  Country: CN (occurrence: CN)
  Receive Date: 20221123
  Receipt Date: 20221212
  Transmission Date: 20230113
  Serious: Yes (Death, Life-Threatening, Hospitalization, Disabling, Other)
  Sender: FDA-Public Use
  Company Number: CN-BRISTOL-MYERS SQUIBB COMPANY-2022-141460

PATIENT
  Age: 62 Year
  Sex: Male

DRUGS (8)
  1. AZACITIDINE [Suspect]
     Active Substance: AZACITIDINE
     Indication: Myelodysplastic syndrome
     Dosage: 7 DAYS WITHIN THE FIRST 9 CALENDAR DAYS OF EACH 28-DAY CYCLE, EVERY 1 DAYS
     Route: 058
     Dates: start: 20221103, end: 20221109
  2. VITAMIN K1 [Concomitant]
     Active Substance: PHYTONADIONE
     Indication: Haemorrhage prophylaxis
     Dates: start: 20221029
  3. INSULIN NOS [Concomitant]
     Active Substance: INSULIN NOS
     Indication: Diabetes mellitus
     Dates: start: 20221029
  4. MEROPENEM [Concomitant]
     Active Substance: MEROPENEM
     Indication: Pneumonia bacterial
     Dates: start: 20221103, end: 20221114
  5. OMEPRAZOLE SODIUM [Concomitant]
     Active Substance: OMEPRAZOLE SODIUM
     Indication: Gastritis
     Dates: start: 20221107
  6. LYOPHILIZED HUMAN IMMUNOGLOBULIN FOR INTRAVENOUS INJECTION [Concomitant]
     Indication: Immune system disorder
     Route: 042
  7. COMPOUND AMINO ACID AND VITAMIN [Concomitant]
     Indication: Nutritional supplementation
     Dates: start: 20221111
  8. INSULIN HUMAN [Concomitant]
     Active Substance: INSULIN HUMAN
     Indication: Diabetes mellitus
     Dates: start: 20221029

REACTIONS (7)
  - Septic shock [Fatal]
  - Sepsis [Fatal]
  - Multiple organ dysfunction syndrome [Fatal]
  - Soft tissue infection [Unknown]
  - Skin infection [Unknown]
  - Condition aggravated [Unknown]
  - Cardiac failure [Unknown]

NARRATIVE: CASE EVENT DATE: 20221113
